FAERS Safety Report 23853002 (Version 1)
Quarter: 2024Q2

REPORT INFORMATION
  Report Type: Spontaneous
  Country: US (occurrence: US)
  Receive Date: 20240514
  Receipt Date: 20240514
  Transmission Date: 20240716
  Serious: No
  Sender: FDA-Public Use
  Company Number: US-Eisai-EC-2024-163167

PATIENT
  Sex: Female

DRUGS (1)
  1. LENVIMA [Suspect]
     Active Substance: LENVATINIB
     Indication: Thyroid cancer
     Route: 048
     Dates: start: 2024

REACTIONS (3)
  - Hypertension [Unknown]
  - Diarrhoea [Unknown]
  - Stomatitis [Unknown]

NARRATIVE: CASE EVENT DATE: 20240101
